FAERS Safety Report 8007856-4 (Version None)
Quarter: 2011Q4

REPORT INFORMATION
  Report Type: 
  Country: None (occurrence: None)
  Receive Date: 20111202
  Receipt Date: 20111123
  Transmission Date: 20120403
  Serious: Yes (Hospitalization, Other)
  Sender: FDA-Public Use
  Company Number: 2011029557

PATIENT
  Age: 42 Year
  Sex: Female
  Weight: 72.5755 kg

DRUGS (13)
  1. PLAQUENIL [Concomitant]
  2. FLEXERIL [Concomitant]
  3. HIZENTRA [Suspect]
  4. WELLBUTRIN XL [Concomitant]
  5. HIZENTRA [Suspect]
     Indication: CONGENITAL HYPOGAMMAGLOBULINAEMIA
     Dosage: SEE IMAGE
     Route: 058
     Dates: start: 20110316
  6. HIZENTRA [Suspect]
     Indication: CONGENITAL HYPOGAMMAGLOBULINAEMIA
     Dosage: SEE IMAGE
     Route: 058
     Dates: start: 20111110
  7. DYAZIDE [Concomitant]
  8. XANAX [Concomitant]
  9. IBUPROFEN [Concomitant]
  10. HYDROCODONE  BT IBUPROFEN (HYDROCODONE W/IBUPROFEN) [Concomitant]
  11. DICYCLOMINE [Concomitant]
  12. TOPAMAX [Concomitant]
  13. NEXIUM [Concomitant]

REACTIONS (10)
  - NEPHROLITHIASIS [None]
  - BRONCHITIS [None]
  - VOMITING [None]
  - PYREXIA [None]
  - INFUSION SITE ERYTHEMA [None]
  - NAUSEA [None]
  - NECK PAIN [None]
  - HEADACHE [None]
  - INFUSION SITE PRURITUS [None]
  - EYE INFECTION STAPHYLOCOCCAL [None]
